FAERS Safety Report 7239231-4 (Version None)
Quarter: 2011Q1

REPORT INFORMATION
  Report Type: 
  Country: None (occurrence: None)
  Receive Date: 20110119
  Receipt Date: 20110119
  Transmission Date: 20110831
  Serious: Yes (Disabling)
  Sender: FDA-Public Use
  Company Number: None

PATIENT
  Age: 1 Year
  Sex: Female
  Weight: 10.4327 kg

DRUGS (1)
  1. TEETHING TABLETS CALCAREA PHOSPHORICA 3X HYLAND [Suspect]
     Indication: TEETHING
     Dosage: 2 TABLETS - WHEN NEEDED 3 TIMES A DAY PO
     Route: 048
     Dates: start: 20100301, end: 20110111

REACTIONS (4)
  - IRRITABILITY [None]
  - FLUSHING [None]
  - PRODUCT QUALITY ISSUE [None]
  - TOXICITY TO VARIOUS AGENTS [None]
